FAERS Safety Report 20176453 (Version 1)
Quarter: 2021Q4

REPORT INFORMATION
  Report Type: Spontaneous
  Country: US (occurrence: None)
  Receive Date: 20211210
  Receipt Date: 20211210
  Transmission Date: 20220303
  Serious: Yes (Disabling)
  Sender: FDA-Public Use
  Company Number: None

PATIENT
  Age: 14 Year
  Sex: Male
  Weight: 54 kg

DRUGS (3)
  1. SINGULAIR [Suspect]
     Active Substance: MONTELUKAST SODIUM
     Indication: Asthma
     Dosage: FREQUENCY : DAILY;?
     Route: 048
  2. SINGULAIR [Suspect]
     Active Substance: MONTELUKAST SODIUM
     Indication: Rhinitis allergic
  3. ALBUTEROL [Concomitant]
     Active Substance: ALBUTEROL
     Dates: start: 20080205

REACTIONS (4)
  - Obsessive-compulsive disorder [None]
  - Disturbance in attention [None]
  - Headache [None]
  - Feeling drunk [None]

NARRATIVE: CASE EVENT DATE: 20211105
